FAERS Safety Report 8106264-5 (Version None)
Quarter: 2011Q4

REPORT INFORMATION
  Report Type: 
  Country: None (occurrence: None)
  Receive Date: 20111222
  Receipt Date: 20111031
  Transmission Date: 20120403
  Serious: Yes (Hospitalization)
  Sender: FDA-Public Use
  Company Number: UTC-011803

PATIENT
  Age: 75 Year
  Sex: Male
  Weight: 112.7 kg

DRUGS (5)
  1. ASPIRIN [Concomitant]
  2. LETAIRIS [Concomitant]
  3. DIURETICS (DIURETICS) [Concomitant]
  4. TYVASO [Suspect]
     Indication: PULMONARY ARTERIAL HYPERTENSION
     Dosage: 216 MCG (54 MCG,4 IN 1 D),INHALATION
     Route: 055
     Dates: start: 20091215
  5. OXYGEN (OXYGEN) [Concomitant]

REACTIONS (1)
  - BLOOD DISORDER [None]
